FAERS Safety Report 5292671-5 (Version None)
Quarter: 2007Q2

REPORT INFORMATION
  Report Type: 
  Country: None (occurrence: None)
  Receive Date: 20070404
  Receipt Date: 20070321
  Transmission Date: 20071010
  Serious: Yes (Hospitalization)
  Sender: FDA-Public Use
  Company Number: 2007S1002492

PATIENT
  Age: 53 Year
  Sex: Male

DRUGS (4)
  1. LISINOPRIL [Suspect]
     Indication: HYPERTENSION
     Dosage: 10 MG; TWICE A DAY; ORAL
     Route: 048
     Dates: start: 20061101
  2. NORVASC [Suspect]
     Indication: HYPERTENSION
     Dosage: 10 MG; DAILY; ORAL
     Route: 048
     Dates: start: 20060101
  3. TOPROL-XL [Suspect]
     Indication: HYPERTENSION
     Dosage: 50 MG; TWICE A DAY; ORAL
     Route: 048
     Dates: start: 20060101
  4. CATAPRES-TTS-2 [Suspect]
     Indication: HYPERTENSION
     Dosage: 0.2 MG/DAY; WEEKLY; TRANSDERMAL
     Route: 062
     Dates: start: 20060101

REACTIONS (1)
  - BLOOD POTASSIUM DECREASED [None]
